FAERS Safety Report 17106916 (Version 1)
Quarter: 2019Q4

REPORT INFORMATION
  Report Type: Spontaneous
  Country: None (occurrence: CL)
  Receive Date: 20191203
  Receipt Date: 20191203
  Transmission Date: 20200122
  Serious: Yes (Other)
  Sender: FDA-Public Use
  Company Number: CL-POPULATION COUNCIL, INC.-2077429

PATIENT
  Sex: Female

DRUGS (1)
  1. JADELLE [Suspect]
     Active Substance: LEVONORGESTREL
     Route: 059

REACTIONS (2)
  - Drug ineffective [None]
  - Pregnancy with implant contraceptive [None]

NARRATIVE: CASE EVENT DATE: 201908
